FAERS Safety Report 11615249 (Version 1)
Quarter: 2015Q4

REPORT INFORMATION
  Report Type: Spontaneous
  Country: US (occurrence: None)
  Receive Date: 20151008
  Receipt Date: 20151008
  Transmission Date: 20160304
  Serious: Yes (Disabling)
  Sender: FDA-Public Use
  Company Number: None

PATIENT
  Age: 42 Year
  Sex: Female
  Weight: 58.97 kg

DRUGS (7)
  1. GABAPENTIN. [Concomitant]
     Active Substance: GABAPENTIN
  2. VITAMIN D3 [Concomitant]
     Active Substance: CHOLECALCIFEROL
  3. HYDROMORPHONE [Concomitant]
     Active Substance: HYDROMORPHONE
  4. LEVOTHYROXIN [Concomitant]
     Active Substance: LEVOTHYROXINE
  5. VITAMIN B12 [Concomitant]
     Active Substance: CYANOCOBALAMIN
  6. KEPPRA [Suspect]
     Active Substance: LEVETIRACETAM
     Indication: MIGRAINE
     Dosage: 5 SESSIONS IN ONE WEEK ONCE DAILY INTO A VEIN
     Route: 042
     Dates: start: 20150216, end: 20150216
  7. MULTI-VITAMINS [Concomitant]

REACTIONS (3)
  - No therapeutic response [None]
  - Seizure [None]
  - Anger [None]

NARRATIVE: CASE EVENT DATE: 20150216
